FAERS Safety Report 5022401-3 (Version None)
Quarter: 2006Q2

REPORT INFORMATION
  Report Type: 
  Country: None (occurrence: None)
  Receive Date: 20060609
  Receipt Date: 20060525
  Transmission Date: 20061013
  Serious: Yes (Other)
  Sender: FDA-Public Use
  Company Number: US-AMGEN-STX180875

PATIENT
  Sex: Male

DRUGS (2)
  1. ENBREL [Suspect]
     Indication: PSORIASIS
     Dates: start: 20050101, end: 20050901
  2. METHOTREXATE [Concomitant]

REACTIONS (5)
  - HEPATIC FIBROSIS [None]
  - HEPATITIS C [None]
  - HEPATITIS VIRAL [None]
  - HERPES ZOSTER [None]
  - TREATMENT NONCOMPLIANCE [None]
